FAERS Safety Report 5349557-7 (Version None)
Quarter: 2007Q2

REPORT INFORMATION
  Report Type: 
  Country: None (occurrence: None)
  Receive Date: 20070510
  Receipt Date: 20070323
  Transmission Date: 20071010
  Serious: No
  Sender: FDA-Public Use
  Company Number: WAES 0703USA04536

PATIENT
  Age: 72 Year
  Sex: Female

DRUGS (4)
  1. ZOLINZA [Suspect]
     Indication: MYCOSIS FUNGOIDES
     Dosage: 400MG/DAILY/PO
     Route: 048
     Dates: start: 20070123
  2. SYNTHROID [Concomitant]
  3. TOPROL-XL [Concomitant]
  4. DIURETIC [Concomitant]

REACTIONS (5)
  - DIZZINESS [None]
  - DYSGEUSIA [None]
  - FREQUENT BOWEL MOVEMENTS [None]
  - NAUSEA [None]
  - VOMITING [None]
